FAERS Safety Report 6383293-3 (Version None)
Quarter: 2009Q4

REPORT INFORMATION
  Report Type: 
  Country: None (occurrence: None)
  Receive Date: 20091001
  Receipt Date: 20090928
  Transmission Date: 20100525
  Serious: Yes (Life-Threatening)
  Sender: FDA-Public Use
  Company Number: US-RB-020891-09

PATIENT
  Age: 52 Year
  Sex: Male

DRUGS (2)
  1. SUBOXONE [Suspect]
     Dosage: TOOK ONLY 1 DOSE
     Route: 060
     Dates: start: 20040101, end: 20040101
  2. METHADONE HYDROCHLORIDE [Suspect]
     Route: 048
     Dates: start: 20040101, end: 20040101

REACTIONS (1)
  - CARDIAC ARREST [None]
